FAERS Safety Report 7096025-0 (Version None)
Quarter: 2010Q4

REPORT INFORMATION
  Report Type: 
  Country: None (occurrence: None)
  Receive Date: 20101111
  Receipt Date: 20101028
  Transmission Date: 20110411
  Serious: Yes (Other)
  Sender: FDA-Public Use
  Company Number: PHEH2008US08808

PATIENT
  Sex: Female
  Weight: 62.585 kg

DRUGS (19)
  1. AREDIA [Suspect]
     Dosage: UNK
     Dates: start: 19921222
  2. ZOMETA [Suspect]
     Dosage: UNK
     Dates: end: 20051103
  3. LEVOTHYROXINE [Concomitant]
  4. IBUPROFEN [Concomitant]
  5. WELLBUTRIN [Concomitant]
  6. MS CONTIN [Concomitant]
  7. LORTAB [Concomitant]
  8. ETRAFON 2-25 [Concomitant]
  9. ZOFRAN [Concomitant]
     Dosage: UNK, PRN
  10. REGLAN [Concomitant]
     Dosage: UNK, PRN
  11. ELAVIL [Concomitant]
  12. TRILAFON [Concomitant]
  13. CONJUGATED ESTROGENS [Concomitant]
     Dosage: 1.25 MG, UNK
  14. SYNTHROID [Concomitant]
     Dosage: 100MCG QD
     Route: 048
  15. CYMBALTA [Concomitant]
     Dosage: 30 MG, QHS
     Route: 048
  16. PREMARIN [Concomitant]
  17. CELEBREX [Concomitant]
  18. FOSAMAX [Concomitant]
  19. ACTONEL [Concomitant]

REACTIONS (100)
  - ABSCESS DRAINAGE [None]
  - ANAEMIA [None]
  - ANHEDONIA [None]
  - ANTI-THYROID ANTIBODY POSITIVE [None]
  - ANXIETY [None]
  - ARTHRALGIA [None]
  - ARTHRITIS [None]
  - ASTHENIA [None]
  - AUTOIMMUNE THYROIDITIS [None]
  - BACK INJURY [None]
  - BACK PAIN [None]
  - BLADDER DISORDER [None]
  - BLOOD ALKALINE PHOSPHATASE INCREASED [None]
  - BLOOD GLUCOSE INCREASED [None]
  - BLOOD THYROID STIMULATING HORMONE INCREASED [None]
  - BONE GIANT CELL TUMOUR [None]
  - BONE GRAFT [None]
  - BONE LESION [None]
  - BONE MARROW OEDEMA [None]
  - BUNDLE BRANCH BLOCK LEFT [None]
  - BURSITIS [None]
  - CHRONIC SINUSITIS [None]
  - CONCOMITANT DISEASE AGGRAVATED [None]
  - DEAFNESS [None]
  - DECREASED INTEREST [None]
  - DEPRESSION [None]
  - DEVICE FAILURE [None]
  - DIARRHOEA [None]
  - DISABILITY [None]
  - DYSPHAGIA [None]
  - ENDODONTIC PROCEDURE [None]
  - EXERCISE TOLERANCE DECREASED [None]
  - EXOSTOSIS [None]
  - EYE INJURY [None]
  - EYE IRRITATION [None]
  - GAIT DISTURBANCE [None]
  - GASTRITIS [None]
  - GASTROENTERITIS [None]
  - GINGIVAL DISORDER [None]
  - HEADACHE [None]
  - HEARING IMPAIRED [None]
  - HYPERLIPIDAEMIA [None]
  - HYPOAESTHESIA [None]
  - ILIOTIBIAL BAND SYNDROME [None]
  - IMPAIRED HEALING [None]
  - INCREASED TENDENCY TO BRUISE [None]
  - INFECTION [None]
  - INJURY [None]
  - INSOMNIA [None]
  - INTERVERTEBRAL DISC DISORDER [None]
  - INTERVERTEBRAL DISC OPERATION [None]
  - INTERVERTEBRAL DISC PROTRUSION [None]
  - INTERVERTEBRAL DISC SPACE NARROWING [None]
  - IRRITABILITY [None]
  - ISCHAEMIA [None]
  - JAW DISORDER [None]
  - LACTOSE INTOLERANCE [None]
  - LIBIDO DECREASED [None]
  - LUMBAR RADICULOPATHY [None]
  - MASTICATION DISORDER [None]
  - MEDICAL DEVICE REMOVAL [None]
  - MELANOCYTIC NAEVUS [None]
  - MENORRHAGIA [None]
  - MUSCULAR WEAKNESS [None]
  - MUSCULOSKELETAL DISCOMFORT [None]
  - MUSCULOSKELETAL PAIN [None]
  - NEURECTOMY [None]
  - NEUROMA [None]
  - OSTEITIS DEFORMANS [None]
  - OSTEOARTHRITIS [None]
  - OSTEONECROSIS OF JAW [None]
  - OSTEOSCLEROSIS [None]
  - PAIN [None]
  - PAIN IN EXTREMITY [None]
  - PAIN IN JAW [None]
  - PARAESTHESIA [None]
  - PELVIC PAIN [None]
  - PHARYNGITIS [None]
  - PYREXIA [None]
  - RESTLESSNESS [None]
  - ROTATOR CUFF SYNDROME [None]
  - SALPINGO-OOPHORECTOMY BILATERAL [None]
  - SENSITIVITY OF TEETH [None]
  - SINUS POLYP [None]
  - SOFT TISSUE DISORDER [None]
  - SPINAL COLUMN STENOSIS [None]
  - SPINAL OSTEOARTHRITIS [None]
  - SPONDYLOLISTHESIS [None]
  - TENDERNESS [None]
  - TENDON DISORDER [None]
  - TENDON RUPTURE [None]
  - TENDONITIS [None]
  - TENSION [None]
  - THYROID DISORDER [None]
  - TINNITUS [None]
  - TOOTH REPAIR [None]
  - TUMOUR EXCISION [None]
  - UTERINE LEIOMYOMA [None]
  - WEIGHT FLUCTUATION [None]
  - WHEELCHAIR USER [None]
